FAERS Safety Report 13508756 (Version 1)
Quarter: 2017Q2

REPORT INFORMATION
  Report Type: Spontaneous
  Country: US (occurrence: US)
  Receive Date: 20170503
  Receipt Date: 20170503
  Transmission Date: 20170830
  Serious: No
  Sender: FDA-Public Use
  Company Number: US-009507513-1704USA013444

PATIENT
  Age: 16 Year
  Sex: Female
  Weight: 70.3 kg

DRUGS (1)
  1. NEXPLANON [Suspect]
     Active Substance: ETONOGESTREL
     Indication: CONTRACEPTION
     Dosage: 1 DF, 3 YEAR IMPLANT, INSERTED L ARM
     Route: 059
     Dates: end: 20161116

REACTIONS (2)
  - Implant site hypersensitivity [Unknown]
  - Drug hypersensitivity [Unknown]
